FAERS Safety Report 9116079 (Version 2)
Quarter: 2013Q2

REPORT INFORMATION
  Report Type: Spontaneous
  Country: FR (occurrence: FR)
  Receive Date: 20130225
  Receipt Date: 20130506
  Transmission Date: 20140414
  Serious: Yes (Hospitalization)
  Sender: FDA-Public Use
  Company Number: FR-PFIZER INC-2013063456

PATIENT
  Age: 3 Year
  Sex: Male
  Weight: 15 kg

DRUGS (3)
  1. ADVIL ENFANTS ET NOURRISSONS [Suspect]
     Indication: PYREXIA
     Dosage: 1 DOSE WEIGHT EVERY 6 HOURS
     Dates: start: 20121104, end: 20121107
  2. ADVIL ENFANTS ET NOURRISSONS [Suspect]
     Indication: HYPERTHERMIA
  3. DOLIPRANE [Concomitant]
     Indication: HYPERTHERMIA
     Dosage: 1 WEIGHT DOSE, 4 TIMES DAILY
     Route: 048
     Dates: start: 20121104

REACTIONS (2)
  - Haematemesis [Recovered/Resolved]
  - Mallory-Weiss syndrome [Recovered/Resolved]
